FAERS Safety Report 18276634 (Version 1)
Quarter: 2020Q3

REPORT INFORMATION
  Report Type: Other
  Country: US (occurrence: US)
  Receive Date: 20200917
  Receipt Date: 20200917
  Transmission Date: 20201103
  Serious: Yes (Other)
  Sender: FDA-Public Use
  Company Number: US-ROCHE-2674630

PATIENT

DRUGS (1)
  1. OCRELIZUMAB. [Suspect]
     Active Substance: OCRELIZUMAB
     Indication: MULTIPLE SCLEROSIS
     Route: 065

REACTIONS (8)
  - Lower respiratory tract infection [Unknown]
  - Infection [Unknown]
  - Infusion related reaction [Unknown]
  - Herpes virus infection [Unknown]
  - Upper respiratory tract infection [Unknown]
  - Urinary tract infection [Unknown]
  - Cellulitis [Unknown]
  - Gastroenteritis [Unknown]
